FAERS Safety Report 8313974-3 (Version None)
Quarter: 2012Q2

REPORT INFORMATION
  Report Type: 
  Country: None (occurrence: None)
  Receive Date: 20120426
  Receipt Date: 20120418
  Transmission Date: 20120825
  Serious: Yes (Other)
  Sender: FDA-Public Use
  Company Number: JP-PFIZER INC-2012090610

PATIENT
  Sex: Female

DRUGS (1)
  1. SULFASALAZINE [Suspect]
     Indication: BEHCET'S SYNDROME
     Dosage: UNK
     Route: 048
     Dates: start: 20111201

REACTIONS (2)
  - PYELONEPHRITIS [None]
  - DEVICE OCCLUSION [None]
